FAERS Safety Report 4851725-5 (Version None)
Quarter: 2005Q4

REPORT INFORMATION
  Report Type: 
  Country: None (occurrence: None)
  Receive Date: 20051213
  Receipt Date: 20051117
  Transmission Date: 20060501
  Serious: Yes (Other)
  Sender: FDA-Public Use
  Company Number: US-KINGPHARMUSA00001-K200501494

PATIENT
  Sex: Female

DRUGS (1)
  1. ALTACE [Suspect]
     Route: 048

REACTIONS (3)
  - DEHYDRATION [None]
  - ROAD TRAFFIC ACCIDENT [None]
  - SYNCOPE [None]
